FAERS Safety Report 11172725 (Version 1)
Quarter: 2015Q2

REPORT INFORMATION
  Report Type: Report from Study
  Country: US (occurrence: US)
  Receive Date: 20150608
  Receipt Date: 20150608
  Transmission Date: 20150821
  Serious: No
  Sender: FDA-Public Use
  Company Number: US-AMGEN-USASL2015022443

PATIENT
  Age: 91 Year
  Sex: Male
  Weight: 70.3 kg

DRUGS (1)
  1. PROCRIT [Suspect]
     Active Substance: ERYTHROPOIETIN
     Indication: ANAEMIA
     Dosage: UNK UNK, AS NEEDED
     Route: 065
     Dates: start: 2015

REACTIONS (1)
  - Dyspnoea [Unknown]
